FAERS Safety Report 17524570 (Version 1)
Quarter: 2020Q1

REPORT INFORMATION
  Report Type: Spontaneous
  Country: HR (occurrence: HR)
  Receive Date: 20200311
  Receipt Date: 20200311
  Transmission Date: 20200409
  Serious: Yes (Death, Other)
  Sender: FDA-Public Use
  Company Number: HR-009507513-2003HRV002695

PATIENT
  Age: 82 Year
  Sex: Male

DRUGS (2)
  1. KEYTRUDA [Suspect]
     Active Substance: PEMBROLIZUMAB
     Indication: LUNG NEOPLASM MALIGNANT
     Dosage: THE FIRST DOSE AS THE SECOND-LINE TREATMENT
  2. KEYTRUDA [Suspect]
     Active Substance: PEMBROLIZUMAB
     Dosage: THE SECOND DOSE AS THE SECOND-LINE TREATMENT

REACTIONS (2)
  - Hypoxia [Fatal]
  - Increased viscosity of bronchial secretion [Fatal]
